FAERS Safety Report 5944515-3 (Version None)
Quarter: 2008Q4

REPORT INFORMATION
  Report Type: 
  Country: None (occurrence: None)
  Receive Date: 20081107
  Receipt Date: 20081101
  Transmission Date: 20090506
  Serious: Yes (Other)
  Sender: FDA-Public Use
  Company Number: US-BRISTOL-MYERS SQUIBB COMPANY-14392419

PATIENT

DRUGS (1)
  1. ENTECAVIR [Suspect]

REACTIONS (1)
  - HEPATIC NEOPLASM MALIGNANT [None]
